FAERS Safety Report 5175294-8 (Version None)
Quarter: 2006Q4

REPORT INFORMATION
  Report Type: 
  Country: None (occurrence: None)
  Receive Date: 20061211
  Receipt Date: 20061211
  Transmission Date: 20070319
  Serious: No
  Sender: FDA-Public Use
  Company Number: None

PATIENT
  Sex: Male
  Weight: 112.0385 kg

DRUGS (1)
  1. LUNESTA [Suspect]
     Indication: SLEEP APNOEA SYNDROME
     Dosage: 3 MG 1/DAY PO
     Route: 048
     Dates: start: 20050425, end: 20061209

REACTIONS (2)
  - ABNORMAL SLEEP-RELATED EVENT [None]
  - AMNESIA [None]
